FAERS Safety Report 5386516-2 (Version None)
Quarter: 2007Q3

REPORT INFORMATION
  Report Type: 
  Country: None (occurrence: None)
  Receive Date: 20070710
  Receipt Date: 20070419
  Transmission Date: 20080115
  Serious: Yes (Hospitalization)
  Sender: FDA-Public Use
  Company Number: 8024978

PATIENT
  Age: 27 Year
  Sex: Male

DRUGS (10)
  1. KEPPRA [Suspect]
     Dosage: 500 MG PO
     Route: 048
     Dates: start: 20031124
  2. ENDOCET [Concomitant]
  3. VIOXX [Concomitant]
  4. EFFEXOR [Concomitant]
  5. MIRTAZAPINE [Concomitant]
  6. LEXAPRO [Concomitant]
  7. BENZONATATE [Concomitant]
  8. AMBIEN [Concomitant]
  9. ORPHENADRINE CITRATE ER [Concomitant]
  10. ALPRAZOLAM [Concomitant]

REACTIONS (10)
  - ACCIDENT [None]
  - BURNS SECOND DEGREE [None]
  - CONTUSION [None]
  - CONVULSION [None]
  - DRUG DEPENDENCE [None]
  - DRUG WITHDRAWAL SYNDROME [None]
  - NEUROSIS [None]
  - ROAD TRAFFIC ACCIDENT [None]
  - SKIN PAPILLOMA [None]
  - SUICIDE ATTEMPT [None]
